FAERS Safety Report 9450659 (Version 1)
Quarter: 2013Q3

REPORT INFORMATION
  Report Type: Spontaneous
  Country: US (occurrence: US)
  Receive Date: 20130809
  Receipt Date: 20130809
  Transmission Date: 20140515
  Serious: No
  Sender: FDA-Public Use
  Company Number: US-BAXTER-2012BAX026238

PATIENT
  Age: 16 Year
  Sex: Female
  Weight: 49.49 kg

DRUGS (1)
  1. GAMMAGARD LIQUID [Suspect]
     Indication: IMMUNODEFICIENCY COMMON VARIABLE
     Route: 058
     Dates: start: 20121011, end: 20121121

REACTIONS (2)
  - Exposure during pregnancy [Unknown]
  - No adverse event [Unknown]
